FAERS Safety Report 4899316-4 (Version None)
Quarter: 2006Q1

REPORT INFORMATION
  Report Type: 
  Country: None (occurrence: None)
  Receive Date: 20060131
  Receipt Date: 20060119
  Transmission Date: 20060701
  Serious: Yes (Hospitalization)
  Sender: FDA-Public Use
  Company Number: HQWYE440919JAN06

PATIENT
  Age: 75 Year
  Sex: Male

DRUGS (6)
  1. PANTOZOL (PANTOPRAZOLE, TABLET, DELAYED RELEASE) [Suspect]
     Indication: BARRETT'S OESOPHAGUS
     Dosage: 40 MG 1X PER 1 DAY ORAL
     Route: 048
     Dates: start: 20020101
  2. PANTOZOL (PANTOPRAZOLE, TABLET, DELAYED RELEASE) [Suspect]
     Indication: HYPERPLASIA
     Dosage: 40 MG 1X PER 1 DAY ORAL
     Route: 048
     Dates: start: 20020101
  3. OMEPRAZOLE [Suspect]
     Indication: BARRETT'S OESOPHAGUS
     Dosage: 20 MG 1X PER 1 DAY ORAL
     Route: 048
     Dates: start: 19910101, end: 20020101
  4. OMEPRAZOLE [Suspect]
     Indication: HYPERPLASIA
     Dosage: 20 MG 1X PER 1 DAY ORAL
     Route: 048
     Dates: start: 19910101, end: 20020101
  5. CONCOR (BISOPROLOL) [Concomitant]
  6. ALLOPURINOL [Concomitant]

REACTIONS (1)
  - ECZEMA [None]
